FAERS Safety Report 20628621 (Version 1)
Quarter: 2022Q1

REPORT INFORMATION
  Report Type: Spontaneous
  Country: US (occurrence: US)
  Receive Date: 20220323
  Receipt Date: 20220323
  Transmission Date: 20220423
  Serious: Yes (Hospitalization, Other)
  Sender: FDA-Public Use
  Company Number: US-002147023-NVSC2022US058631

PATIENT
  Age: 54 Year
  Sex: Female

DRUGS (1)
  1. INTERFERON BETA-1B [Suspect]
     Active Substance: INTERFERON BETA-1B
     Indication: Multiple sclerosis
     Dosage: 0.3 MG, QOD TOTALING 15 DOSES
     Route: 065

REACTIONS (1)
  - Posterior reversible encephalopathy syndrome [Recovered/Resolved]
